FAERS Safety Report 7739199-8 (Version None)
Quarter: 2011Q3

REPORT INFORMATION
  Report Type: 
  Country: None (occurrence: None)
  Receive Date: 20110909
  Receipt Date: 20110902
  Transmission Date: 20111222
  Serious: Yes (Other)
  Sender: FDA-Public Use
  Company Number: CA-PFIZER INC-2011205760

PATIENT
  Sex: Male

DRUGS (32)
  1. OLMESARTAN MEDOXOMIL [Concomitant]
     Indication: BLOOD PRESSURE
     Dosage: UNK
     Dates: end: 20110801
  2. FUROSEMIDE [Concomitant]
     Indication: OEDEMA
  3. VITAMIN D [Concomitant]
     Indication: BONE DISORDER
     Dosage: 10000 IU, WEEKLY
     Route: 048
  4. TESTOSTERONE [Concomitant]
     Indication: BLOOD TESTOSTERONE ABNORMAL
     Dosage: 40 MG, 2X/DAY
     Route: 048
  5. PREDNISONE [Concomitant]
     Indication: INFLAMMATION
     Dosage: 10 MG, 1X/DAY
     Route: 048
  6. XALATAN [Suspect]
     Indication: GLAUCOMA
     Dosage: 1 GTT, 1X/DAY IN RIGHT EYE
  7. ALPHAGAN [Concomitant]
     Indication: GLAUCOMA
     Dosage: 1 GTT, 3X/DAY
  8. ATROPINE [Concomitant]
     Indication: PAIN
     Dosage: 1 GTT, 2X/DAY
  9. LYRICA [Concomitant]
     Indication: NEURALGIA
     Dosage: 75 MG, 1X/DAY IN THE MORNING
     Route: 048
  10. LYRICA [Concomitant]
     Dosage: 150 MG, 1X/DAY AT NIGHT
     Route: 048
  11. INSULIN TORONTO [Concomitant]
     Dosage: 30 UNITS, 1X/DAY BEDTIME
  12. PANTOPRAZOLE [Concomitant]
     Indication: GASTROOESOPHAGEAL REFLUX DISEASE
     Dosage: 40 MG, 1X/DAY
     Route: 048
  13. FUROSEMIDE [Concomitant]
     Indication: CARDIAC FAILURE CONGESTIVE
  14. NORVASC [Concomitant]
     Indication: BLOOD PRESSURE
     Dosage: 5 MG, 1X/DAY
     Route: 048
  15. HUMULIN 70/30 [Concomitant]
     Indication: BLOOD GLUCOSE ABNORMAL
     Dosage: 20 UNITS, 1X/DAY AM
  16. CITALOPRAM [Concomitant]
     Indication: ANTIDEPRESSANT THERAPY
     Dosage: 30 MG, 1X/DAY
     Route: 048
  17. SYNTHROID [Concomitant]
     Indication: THYROID DISORDER
     Dosage: 0.05 MG, 1X/DAY
     Route: 048
  18. SPIRIVA [Concomitant]
     Indication: ASTHMA
     Dosage: 1 PUFF AS NEEDED
     Route: 055
  19. METFORMIN [Concomitant]
     Indication: DIABETES MELLITUS
     Dosage: 500 MG, 2X/DAY
     Route: 048
  20. FUROSEMIDE [Concomitant]
     Indication: DIURETIC THERAPY
     Dosage: 40 MG, 2X/DAY
     Route: 048
  21. FERROUS SULFATE [Concomitant]
     Indication: IRON DEFICIENCY ANAEMIA
     Dosage: 300 MG, 2X/DAY
  22. WARFARIN [Concomitant]
     Indication: THROMBOSIS
     Dosage: 4 MG, ALTERNATE DAY
  23. HUMULIN 70/30 [Concomitant]
     Dosage: 40 UNITS, 1X/DAY PM
  24. COSOPT [Concomitant]
     Indication: GLAUCOMA
     Dosage: 1 GTT, 2X/DAY
  25. PREDNISOLONE [Concomitant]
     Indication: INFLAMMATION
     Dosage: 1 GTT, 1X/DAY
  26. CALCIUM [Concomitant]
     Indication: BONE DISORDER
     Dosage: 500 MG, 2X/DAY
     Route: 048
  27. WARFARIN [Concomitant]
     Dosage: 4.5 MG, ALTERNATE DAY
  28. INSULIN TORONTO [Concomitant]
     Indication: BLOOD GLUCOSE ABNORMAL
     Dosage: 40 UNITS, 1X/DAY AM
  29. ADVAIR DISKUS 100/50 [Concomitant]
     Indication: ASTHMA
     Dosage: 1 PUFF AS NEEDED
     Route: 055
  30. LEFLUNOMIDE [Concomitant]
     Indication: RHEUMATOID ARTHRITIS
     Dosage: 40 MG, 2X/DAY
     Route: 048
  31. ATORVASTATIN [Concomitant]
     Indication: BLOOD CHOLESTEROL
     Dosage: 20 MG, 1X/DAY
     Route: 048
  32. INSULIN TORONTO [Concomitant]
     Dosage: 30 UNITS, 1X/DAY LUNCH

REACTIONS (1)
  - BLINDNESS UNILATERAL [None]
